FAERS Safety Report 7238396-8 (Version None)
Quarter: 2011Q1

REPORT INFORMATION
  Report Type: 
  Country: None (occurrence: None)
  Receive Date: 20110121
  Receipt Date: 20110118
  Transmission Date: 20110831
  Serious: Yes (Other)
  Sender: FDA-Public Use
  Company Number: TW-JNJCH-2011001666

PATIENT
  Age: 24 Year
  Sex: Male

DRUGS (1)
  1. REGAINE 5% [Suspect]
     Indication: ALOPECIA
     Dosage: TEXT:UNKNOWN
     Route: 061
     Dates: start: 20110104, end: 20110107

REACTIONS (1)
  - SKIN INJURY [None]
